FAERS Safety Report 11428808 (Version 1)
Quarter: 2015Q3

REPORT INFORMATION
  Report Type: Spontaneous
  Country: US (occurrence: US)
  Receive Date: 20150828
  Receipt Date: 20150828
  Transmission Date: 20151125
  Serious: No
  Sender: FDA-Public Use
  Company Number: US-ROCHE-1223971

PATIENT
  Sex: Female

DRUGS (2)
  1. RIBASPHERE [Suspect]
     Active Substance: RIBAVIRIN
     Indication: CHRONIC HEPATITIS C
     Route: 065
     Dates: start: 20130307
  2. PEGASYS [Suspect]
     Active Substance: PEGINTERFERON ALFA-2A
     Indication: CHRONIC HEPATITIS C
     Route: 058
     Dates: start: 20130307

REACTIONS (10)
  - Diarrhoea [Recovering/Resolving]
  - Depression [Unknown]
  - Influenza like illness [Recovering/Resolving]
  - Nausea [Unknown]
  - Decreased appetite [Unknown]
  - Contusion [Unknown]
  - Weight decreased [Unknown]
  - Vomiting [Unknown]
  - Rash pruritic [Unknown]
  - Thrombocytopenia [Unknown]
